FAERS Safety Report 25439111 (Version 1)
Quarter: 2025Q2

REPORT INFORMATION
  Report Type: Spontaneous
  Country: PL (occurrence: PL)
  Receive Date: 20250616
  Receipt Date: 20250616
  Transmission Date: 20250717
  Serious: Yes (Other)
  Sender: EMD SERONO INC
  Company Number: PL-Merck Healthcare KGaA-2025029043

PATIENT
  Age: 69 Year
  Sex: Male

DRUGS (1)
  1. BAVENCIO [Suspect]
     Active Substance: AVELUMAB
     Indication: Transitional cell carcinoma metastatic
     Dates: start: 20241104

REACTIONS (2)
  - Seronegative arthritis [Recovering/Resolving]
  - Disease progression [Unknown]

NARRATIVE: CASE EVENT DATE: 20241230
